FAERS Safety Report 18436206 (Version 1)
Quarter: 2020Q4

REPORT INFORMATION
  Report Type: Spontaneous
  Country: US (occurrence: US)
  Receive Date: 20201028
  Receipt Date: 20201028
  Transmission Date: 20210114
  Serious: No
  Sender: FDA-Public Use
  Company Number: None

PATIENT
  Age: 31 Year
  Sex: Female
  Weight: 92.25 kg

DRUGS (2)
  1. DUPIXENT [Concomitant]
     Active Substance: DUPILUMAB
     Dates: start: 20201005, end: 20201027
  2. DUPIXENT [Suspect]
     Active Substance: DUPILUMAB
     Indication: NASAL POLYPS
     Dosage: ?          OTHER FREQUENCY:BI-WEEKLY;?
     Route: 058
     Dates: start: 20201005, end: 20201027

REACTIONS (3)
  - Urticaria [None]
  - Pruritus [None]
  - Heart rate increased [None]

NARRATIVE: CASE EVENT DATE: 20201005
